FAERS Safety Report 5242014-8 (Version None)
Quarter: 2007Q1

REPORT INFORMATION
  Report Type: 
  Country: None (occurrence: None)
  Receive Date: 20070212
  Receipt Date: 20070205
  Transmission Date: 20070707
  Serious: Yes (Death)
  Sender: FDA-Public Use
  Company Number: 235537

PATIENT
  Age: 90 Year
  Sex: Female

DRUGS (8)
  1. RANIBIZUMAB (RANIBIZUMAB) PWDR + SOLVENT, INJECTION SOLN [Suspect]
     Indication: MACULAR DEGENERATION
     Dosage: INTRAVITREAL
     Dates: start: 20060110, end: 20060308
  2. METOPROLOL SUCCINATE [Concomitant]
  3. ASPIRIN [Concomitant]
  4. LEVOTHYROXINE SODIUM [Concomitant]
  5. ARICEPT [Concomitant]
  6. SEROQUEL [Concomitant]
  7. COLACE (DOCUSATE SODIUM) [Concomitant]
  8. ARIMIDEX [Concomitant]

REACTIONS (3)
  - CARDIAC FAILURE [None]
  - COUGH [None]
  - FATIGUE [None]
